FAERS Safety Report 17469544 (Version 2)
Quarter: 2020Q4

REPORT INFORMATION
  Report Type: Spontaneous
  Country: JP (occurrence: JP)
  Receive Date: 20200227
  Receipt Date: 20201111
  Transmission Date: 20210113
  Serious: Yes (Other)
  Sender: FDA-Public Use
  Company Number: NVSJ2020JP002152

PATIENT
  Age: 82 Year
  Sex: Male

DRUGS (1)
  1. GLIVEC [Suspect]
     Active Substance: IMATINIB MESYLATE
     Indication: GASTROINTESTINAL STROMAL TUMOUR
     Dosage: UNK
     Route: 048

REACTIONS (7)
  - Tumour rupture [Recovering/Resolving]
  - Haemorrhagic ascites [Recovering/Resolving]
  - Malignant neoplasm progression [Recovered/Resolved]
  - Gastrointestinal stromal tumour [Recovered/Resolved]
  - Therapeutic response decreased [Unknown]
  - Abdominal pain [Recovering/Resolving]
  - Peritonitis [Recovering/Resolving]
